FAERS Safety Report 7891027 (Version 5)
Quarter: 2014Q1

REPORT INFORMATION
  Report Type: Spontaneous
  Country: FR (occurrence: FR)
  Receive Date: 20110408
  Receipt Date: 20140327
  Transmission Date: 20141002
  Serious: Yes (Life-Threatening, Other)
  Sender: FDA-Public Use
  Company Number: PHHY2011FR27221

PATIENT
  Age: 66 Year
  Sex: Male
  Weight: 103 kg

DRUGS (11)
  1. EUCREAS [Suspect]
     Dosage: 1 DF (1000 MG METF/ 50 MG VILD), BID
  2. FORADIL [Suspect]
     Dosage: 1 DF (12 UG), BID
     Route: 055
  3. MIFLASONE [Suspect]
     Dosage: 1 DF (400 UG), BID
     Route: 055
  4. PRAVASTATIN [Suspect]
     Dosage: 40 MG, QD
     Route: 048
  5. MEDIATOR [Suspect]
     Indication: TYPE 2 DIABETES MELLITUS
     Dosage: 1 DF (150 MG), TID
     Route: 048
     Dates: start: 200308, end: 200907
  6. PLAVIX [Suspect]
     Dosage: 1 DF (75 MG), QD
     Route: 048
  7. DIFFU K [Suspect]
     Dosage: 1 DF, QD
     Route: 048
  8. DIAMOX [Suspect]
     Dosage: 1 DF (250 MG), BID
     Route: 048
  9. APROVEL [Suspect]
     Dosage: 150 MG, QD
     Route: 048
  10. SPIRIVA [Suspect]
     Dosage: 18 UG, QD
     Route: 055
  11. GLUCOPHAGE [Concomitant]
     Indication: TYPE 2 DIABETES MELLITUS

REACTIONS (7)
  - Pulmonary hypertension [Not Recovered/Not Resolved]
  - Dyspnoea at rest [Not Recovered/Not Resolved]
  - Mitral valve incompetence [Not Recovered/Not Resolved]
  - Tricuspid valve incompetence [Not Recovered/Not Resolved]
  - Dyspnoea exertional [Not Recovered/Not Resolved]
  - Rhonchi [Unknown]
  - Rales [Unknown]
